FAERS Safety Report 12135974 (Version 2)
Quarter: 2016Q2

REPORT INFORMATION
  Report Type: Spontaneous
  Country: US (occurrence: US)
  Receive Date: 20160302
  Receipt Date: 20160414
  Transmission Date: 20160815
  Serious: No
  Sender: FDA-Public Use
  Company Number: PHEH2016US004932

PATIENT
  Age: 62 Year
  Sex: Female
  Weight: 62.86 kg

DRUGS (1)
  1. SANDOSTATIN LAR DEPOT [Suspect]
     Active Substance: OCTREOTIDE ACETATE
     Indication: CARCINOID TUMOUR
     Dosage: 20 MG, QMO
     Route: 030

REACTIONS (3)
  - Underdose [Recovered/Resolved]
  - Drug resistance [Unknown]
  - Syringe issue [Unknown]

NARRATIVE: CASE EVENT DATE: 20160223
